FAERS Safety Report 17340428 (Version 3)
Quarter: 2020Q1

REPORT INFORMATION
  Report Type: Report from Study
  Country: US (occurrence: US)
  Receive Date: 20200129
  Receipt Date: 20200324
  Transmission Date: 20200409
  Serious: Yes (Hospitalization, Other)
  Sender: FDA-Public Use
  Company Number: NVSC2020US022370

PATIENT
  Age: 75 Year
  Sex: Male

DRUGS (1)
  1. ENTRESTO [Suspect]
     Active Substance: SACUBITRIL\VALSARTAN
     Indication: CARDIAC FAILURE
     Dosage: 1 DF, BID (24MG SACUBITRIL/ 26MG VALSARTAN)
     Route: 048
     Dates: start: 201904

REACTIONS (4)
  - Bladder cancer [Unknown]
  - Liver disorder [Unknown]
  - Fatigue [Unknown]
  - Blood urine present [Unknown]

NARRATIVE: CASE EVENT DATE: 201908
